FAERS Safety Report 24677753 (Version 1)
Quarter: 2024Q4

REPORT INFORMATION
  Report Type: Report from Study
  Country: US (occurrence: US)
  Receive Date: 20241129
  Receipt Date: 20241129
  Transmission Date: 20250114
  Serious: Yes (Hospitalization, Other)
  Sender: ABBVIE
  Company Number: US-ABBVIE-6022743

PATIENT
  Age: 77 Year
  Sex: Female

DRUGS (1)
  1. VENCLEXTA [Suspect]
     Active Substance: VENETOCLAX
     Indication: Acute myeloid leukaemia
     Route: 048

REACTIONS (6)
  - Cerebral haemorrhage [Recovering/Resolving]
  - Cerebrovascular accident [Recovering/Resolving]
  - Renal impairment [Recovering/Resolving]
  - Sepsis [Unknown]
  - Aphasia [Unknown]
  - Movement disorder [Unknown]

NARRATIVE: CASE EVENT DATE: 20240101
